FAERS Safety Report 9301431 (Version 1)
Quarter: 2013Q2

REPORT INFORMATION
  Report Type: Spontaneous
  Country: DE (occurrence: DE)
  Receive Date: 20130521
  Receipt Date: 20130521
  Transmission Date: 20140414
  Serious: Yes (Hospitalization, Other)
  Sender: FDA-Public Use
  Company Number: DE-TEVA-403889GER

PATIENT
  Age: 0 Year
  Sex: Male

DRUGS (3)
  1. DOXEPIN [Suspect]
     Route: 064
  2. METHADONE [Suspect]
     Route: 064
  3. TRAMADOL AL [Suspect]
     Route: 064

REACTIONS (5)
  - Drug withdrawal syndrome neonatal [Recovered/Resolved]
  - Supraventricular tachycardia [Recovered/Resolved]
  - Premature baby [Recovered/Resolved]
  - Myoclonus [Recovered/Resolved]
  - Maternal drugs affecting foetus [None]
